FAERS Safety Report 14999946 (Version 1)
Quarter: 2018Q2

REPORT INFORMATION
  Report Type: Spontaneous
  Country: ZA (occurrence: ZA)
  Receive Date: 20180612
  Receipt Date: 20180612
  Transmission Date: 20180711
  Serious: Yes (Other)
  Sender: FDA-Public Use
  Company Number: PHHY2018ZA017142

PATIENT
  Age: 58 Year
  Sex: Male

DRUGS (1)
  1. ATENOLOL SANDOZ [Suspect]
     Active Substance: ATENOLOL
     Indication: HYPERTENSION
     Dosage: 100 MG, UNK
     Route: 048

REACTIONS (1)
  - Throat cancer [Unknown]
